FAERS Safety Report 19700535 (Version 8)
Quarter: 2022Q2

REPORT INFORMATION
  Report Type: Report from Study
  Country: US (occurrence: US)
  Receive Date: 20210814
  Receipt Date: 20220609
  Transmission Date: 20220721
  Serious: Yes (Other)
  Sender: FDA-Public Use
  Company Number: NVSC2021US177286

PATIENT
  Age: 69 Year
  Sex: Female

DRUGS (4)
  1. COSENTYX [Suspect]
     Active Substance: SECUKINUMAB
     Indication: Psoriatic arthropathy
     Dosage: 300 MG/KG, QMO
     Route: 058
     Dates: start: 20210614
  2. COSENTYX [Suspect]
     Active Substance: SECUKINUMAB
     Dosage: 300 MG/KG, QMO
     Route: 058
     Dates: start: 20210604, end: 20210818
  3. COSENTYX [Suspect]
     Active Substance: SECUKINUMAB
     Dosage: 300 MG/KG, QMO
     Route: 058
     Dates: start: 20210602, end: 20210927
  4. COSENTYX [Suspect]
     Active Substance: SECUKINUMAB
     Dosage: 300 MG/KG, QMO
     Route: 058
     Dates: start: 20210707, end: 20220422

REACTIONS (12)
  - Psoriatic arthropathy [Unknown]
  - Pain [Unknown]
  - Arthralgia [Unknown]
  - Pain in extremity [Unknown]
  - Swelling [Recovered/Resolved]
  - Pain [Recovered/Resolved]
  - Fatigue [Recovered/Resolved]
  - Breakthrough pain [Recovered/Resolved]
  - Gastrointestinal disorder [Recovering/Resolving]
  - Dizziness [Recovering/Resolving]
  - Hot flush [Unknown]
  - Incorrect dose administered [Unknown]

NARRATIVE: CASE EVENT DATE: 20210708
